FAERS Safety Report 7301962-5 (Version None)
Quarter: 2011Q1

REPORT INFORMATION
  Report Type: 
  Country: None (occurrence: None)
  Receive Date: 20110218
  Receipt Date: 20110211
  Transmission Date: 20110831
  Serious: Yes (Death, Other)
  Sender: FDA-Public Use
  Company Number: ID-ROCHE-760465

PATIENT
  Age: 12 Year
  Sex: Male
  Weight: 29 kg

DRUGS (3)
  1. PARACETAMOL [Concomitant]
  2. CEFTRIAXONE [Concomitant]
     Dosage: DOSE: 1.5 GR
     Dates: start: 20090203
  3. OSELTAMIVIR [Suspect]
     Indication: INFLUENZA
     Route: 065
     Dates: start: 20090202

REACTIONS (3)
  - PNEUMONIA [None]
  - ACUTE RESPIRATORY DISTRESS SYNDROME [None]
  - RENAL IMPAIRMENT [None]
